FAERS Safety Report 9515982 (Version 1)
Quarter: 2013Q1

REPORT INFORMATION
  Report Type: Spontaneous
  Country: US (occurrence: None)
  Receive Date: 20130305
  Receipt Date: 20130305
  Transmission Date: 20140127
  Serious: Yes (Other)
  Sender: FDA-Public Use
  Company Number: 163-21880-12080990

PATIENT
  Age: 71 Year
  Sex: Male

DRUGS (4)
  1. REVLIMID [Suspect]
     Indication: PLASMA CELL MYELOMA
     Route: 048
     Dates: start: 20120723
  2. SALINE NASAL (NASAL DROPS (INCLUDING NASAL SPRAY)) [Concomitant]
  3. DEXAMETHASONE (DEXAMETHASONE) (SPRAY (NOT INHALATION)) [Concomitant]
  4. GINSENG (GINSENG) (SPRAY (NOT INHALATION)) [Concomitant]

REACTIONS (2)
  - Night sweats [None]
  - Fatigue [None]
